FAERS Safety Report 11283679 (Version 2)
Quarter: 2015Q3

REPORT INFORMATION
  Report Type: Spontaneous
  Country: US (occurrence: US)
  Receive Date: 20150720
  Receipt Date: 20150803
  Transmission Date: 20151125
  Serious: Yes (Death, Hospitalization)
  Sender: FDA-Public Use
  Company Number: US-JNJFOC-20150710585

PATIENT
  Age: 83 Year
  Sex: Male
  Weight: 91.17 kg

DRUGS (3)
  1. XARELTO [Suspect]
     Active Substance: RIVAROXABAN
     Indication: PULMONARY EMBOLISM
     Route: 048
     Dates: start: 20150616, end: 20150618
  2. XARELTO [Suspect]
     Active Substance: RIVAROXABAN
     Indication: DEEP VEIN THROMBOSIS
     Route: 048
     Dates: start: 20150616, end: 20150618
  3. MOBIC [Suspect]
     Active Substance: MELOXICAM
     Indication: PRODUCT USED FOR UNKNOWN INDICATION
     Dosage: ONCE IN A DAY
     Route: 065

REACTIONS (2)
  - Gastrointestinal haemorrhage [Unknown]
  - Respiratory arrest [Fatal]

NARRATIVE: CASE EVENT DATE: 20150118
